FAERS Safety Report 19818616 (Version 1)
Quarter: 2021Q3

REPORT INFORMATION
  Report Type: Spontaneous
  Country: US (occurrence: US)
  Receive Date: 20210912
  Receipt Date: 20210912
  Transmission Date: 20211014
  Serious: No
  Sender: FDA-Public Use
  Company Number: US-JNJFOC-20210855162

PATIENT
  Age: 76 Year
  Sex: Male

DRUGS (1)
  1. DARZALEX [Suspect]
     Active Substance: DARATUMUMAB
     Indication: PLASMA CELL MYELOMA
     Dosage: 3 VIALS OF DARZALEX 400MG VIALS AND 1 VIAL OFDARZALEX 100MG VIAL WAS USED FOR THE PATIENT^S DOSE
     Route: 042

REACTIONS (1)
  - Injection site extravasation [Unknown]

NARRATIVE: CASE EVENT DATE: 20210826
